FAERS Safety Report 6194931-2 (Version None)
Quarter: 2009Q2

REPORT INFORMATION
  Report Type: 
  Country: None (occurrence: None)
  Receive Date: 20090515
  Receipt Date: 20090504
  Transmission Date: 20091009
  Serious: Yes (Other)
  Sender: FDA-Public Use
  Company Number: A-CH2009-24483

PATIENT
  Age: 23 Year
  Sex: Male
  Weight: 67 kg

DRUGS (10)
  1. TRACLEER [Suspect]
     Indication: PULMONARY ARTERIAL HYPERTENSION
     Dosage: 125 MG, BID, ORAL; 62.5 MG, BID, ORAL
     Route: 048
     Dates: start: 20080501, end: 20080530
  2. TRACLEER [Suspect]
     Indication: PULMONARY ARTERIAL HYPERTENSION
     Dosage: 125 MG, BID, ORAL; 62.5 MG, BID, ORAL
     Route: 048
     Dates: start: 20080531, end: 20090330
  3. RAMIPRIL [Concomitant]
  4. BISOPROLOL FUMARATE [Concomitant]
  5. LASIX [Concomitant]
  6. LUVION (CANRENOIC ACID) [Concomitant]
  7. CALCIO BASE D (ERGOCALCIFEROL, CALCIUM CARBONATE) [Concomitant]
  8. ALLOPURINOL [Concomitant]
  9. MINITRAN [Concomitant]
  10. COUMADIN [Concomitant]

REACTIONS (3)
  - LEUKOPENIA [None]
  - NEUTROPENIA [None]
  - PLATELET COUNT DECREASED [None]
